FAERS Safety Report 7759761-6 (Version None)
Quarter: 2011Q3

REPORT INFORMATION
  Report Type: 
  Country: None (occurrence: None)
  Receive Date: 20110919
  Receipt Date: 20110912
  Transmission Date: 20111222
  Serious: Yes (Hospitalization)
  Sender: FDA-Public Use
  Company Number: GXBR2011US04716

PATIENT
  Sex: Female

DRUGS (2)
  1. REBIF [Suspect]
     Indication: MULTIPLE SCLEROSIS
     Dosage: 44 UG, QW3
     Route: 058
     Dates: start: 20081203
  2. PHENTERMINE HCL [Suspect]
     Indication: WEIGHT DECREASED
     Dosage: UNK MG, UNK
     Dates: start: 20110701

REACTIONS (7)
  - ANXIETY [None]
  - INJECTION SITE INDURATION [None]
  - INJECTION SITE HAEMATOMA [None]
  - BACK INJURY [None]
  - HEART RATE INCREASED [None]
  - INTERVERTEBRAL DISC PROTRUSION [None]
  - DYSPNOEA [None]
